FAERS Safety Report 12714518 (Version 1)
Quarter: 2016Q3

REPORT INFORMATION
  Report Type: Spontaneous
  Country: US (occurrence: US)
  Receive Date: 20160905
  Receipt Date: 20160905
  Transmission Date: 20161109
  Serious: Yes (Hospitalization)
  Sender: FDA-Public Use
  Company Number: US-ROCHE-1825268

PATIENT
  Sex: Male

DRUGS (3)
  1. ERIVEDGE [Suspect]
     Active Substance: VISMODEGIB
     Indication: BASAL CELL CARCINOMA
     Route: 048
     Dates: start: 20160423
  2. BETAGAN [Concomitant]
     Active Substance: LEVOBUNOLOL HYDROCHLORIDE
  3. PROTONIX [Concomitant]
     Active Substance: PANTOPRAZOLE SODIUM

REACTIONS (3)
  - Ageusia [Unknown]
  - Scab [Unknown]
  - Skin ulcer [Unknown]
